FAERS Safety Report 7038570-X (Version None)
Quarter: 2010Q4

REPORT INFORMATION
  Report Type: 
  Country: None (occurrence: None)
  Receive Date: 20101011
  Receipt Date: 20100729
  Transmission Date: 20110411
  Serious: Yes (Hospitalization)
  Sender: FDA-Public Use
  Company Number: US-PFIZER INC-2010095772

PATIENT
  Sex: Male

DRUGS (4)
  1. GABAPENTIN [Suspect]
     Dosage: UNK
     Dates: start: 20100621
  2. REVLIMID [Suspect]
     Indication: MULTIPLE MYELOMA
     Dosage: 10 MG, WEEKLY
     Route: 048
     Dates: start: 20090101
  3. REVLIMID [Suspect]
     Dosage: 10 MG DAILY X14 DAYS
     Route: 048
     Dates: start: 20100601
  4. OXYGEN [Concomitant]
     Dosage: 2L/MIN CONTINUOUS

REACTIONS (2)
  - SWELLING [None]
  - TREMOR [None]
